FAERS Safety Report 5316843-6 (Version None)
Quarter: 2007Q2

REPORT INFORMATION
  Report Type: 
  Country: None (occurrence: None)
  Receive Date: 20070430
  Receipt Date: 20070430
  Transmission Date: 20071010
  Serious: Yes (Hospitalization)
  Sender: FDA-Public Use
  Company Number: None

PATIENT
  Age: 86 Year
  Sex: Female

DRUGS (1)
  1. PHOSPHOSODA GINGER LEMON [Suspect]
     Indication: COLONOSCOPY
     Dosage: 45 ML
     Dates: start: 20030917

REACTIONS (4)
  - COLD SWEAT [None]
  - DIALYSIS [None]
  - RENAL FAILURE CHRONIC [None]
  - VOMITING [None]
